FAERS Safety Report 18956085 (Version 2)
Quarter: 2021Q1

REPORT INFORMATION
  Report Type: Other
  Country: US (occurrence: US)
  Receive Date: 20210302
  Receipt Date: 20210324
  Transmission Date: 20210420
  Serious: Yes (Other)
  Sender: FDA-Public Use
  Company Number: US-INTERCEPT-PM2021000504

PATIENT
  Age: 54 Year
  Sex: Female

DRUGS (2)
  1. OCALIVA [Suspect]
     Active Substance: OBETICHOLIC ACID
     Indication: PRIMARY BILIARY CHOLANGITIS
     Dosage: 5 MILLIGRAM, QD
     Route: 048
     Dates: start: 202102
  2. URSODIOL. [Concomitant]
     Active Substance: URSODIOL
     Dosage: UNK

REACTIONS (4)
  - Rheumatoid arthritis [Unknown]
  - Abdominal pain upper [Recovered/Resolved]
  - Arthralgia [Recovered/Resolved]
  - Abdominal discomfort [Recovered/Resolved]

NARRATIVE: CASE EVENT DATE: 202102
